FAERS Safety Report 16041381 (Version 1)
Quarter: 2019Q2

REPORT INFORMATION
  Report Type: Spontaneous
  Country: US (occurrence: US)
  Receive Date: 20190305
  Receipt Date: 20190305
  Transmission Date: 20190711
  Serious: Yes (Hospitalization)
  Sender: FDA-Public Use
  Company Number: None

PATIENT
  Age: 43 Year
  Sex: Female
  Weight: 67.5 kg

DRUGS (3)
  1. NUVARING [Suspect]
     Active Substance: ETHINYL ESTRADIOL\ETONOGESTREL
     Indication: MENSTRUATION IRREGULAR
     Dosage: ?          OTHER STRENGTH:RING;QUANTITY:1 RING;OTHER FREQUENCY:DAILY;?
     Route: 067
  2. NUVARING [Suspect]
     Active Substance: ETHINYL ESTRADIOL\ETONOGESTREL
     Indication: PREMENSTRUAL SYNDROME
     Dosage: ?          OTHER STRENGTH:RING;QUANTITY:1 RING;OTHER FREQUENCY:DAILY;?
     Route: 067
  3. NUVARING [Suspect]
     Active Substance: ETHINYL ESTRADIOL\ETONOGESTREL
     Indication: PREMENSTRUAL DYSPHORIC DISORDER
     Dosage: ?          OTHER STRENGTH:RING;QUANTITY:1 RING;OTHER FREQUENCY:DAILY;?
     Route: 067

REACTIONS (2)
  - Hepatic haemorrhage [None]
  - Hepatic neoplasm [None]

NARRATIVE: CASE EVENT DATE: 20190104
